FAERS Safety Report 16030516 (Version 1)
Quarter: 2019Q1

REPORT INFORMATION
  Report Type: Spontaneous
  Country: GB (occurrence: PT)
  Receive Date: 20190304
  Receipt Date: 20190304
  Transmission Date: 20190418
  Serious: Yes (Other)
  Sender: FDA-Public Use
  Company Number: PT-FRESENIUS KABI-FK201902285

PATIENT
  Age: 33 Year
  Sex: Female
  Weight: 72 kg

DRUGS (4)
  1. PARACETAMOL [Concomitant]
     Active Substance: ACETAMINOPHEN
     Indication: POSTOPERATIVE ANALGESIA
     Dosage: 1 G EVERY 6 HOURS
     Route: 042
  2. LEVOBUPIVACAINE HYDROCHLORIDE [Suspect]
     Active Substance: LEVOBUPIVACAINE HYDROCHLORIDE
     Indication: CAESAREAN SECTION
     Dosage: 8 MG ON 30-JAN-2019 AND 15 MG AFTER SURGERY EVERY 4 HOURS
     Route: 008
     Dates: start: 20190130, end: 20190201
  3. SUFENTANIL [Suspect]
     Active Substance: SUFENTANIL
     Indication: POSTOPERATIVE ANALGESIA
     Dosage: 1.5 MCG
     Route: 008
  4. MORPHINE (MANUFACTURER UNKNOWN) [Suspect]
     Active Substance: MORPHINE
     Indication: POSTOPERATIVE ANALGESIA
     Dosage: 2 MG EVERY 12 HOURS
     Route: 008

REACTIONS (2)
  - Cauda equina syndrome [Recovering/Resolving]
  - Product use issue [Unknown]

NARRATIVE: CASE EVENT DATE: 20190131
